FAERS Safety Report 15888000 (Version 2)
Quarter: 2019Q3

REPORT INFORMATION
  Report Type: Spontaneous
  Country: US (occurrence: US)
  Receive Date: 20190130
  Receipt Date: 20190805
  Transmission Date: 20191004
  Serious: No
  Sender: FDA-Public Use
  Company Number: US-PFIZER INC-2019042461

PATIENT
  Age: 40 Year
  Sex: Female

DRUGS (1)
  1. IBRANCE [Suspect]
     Active Substance: PALBOCICLIB
     Dosage: 125 MG (1 CAP), CYCLIC (ONCE DAILY FOR 21 DAYS THEN 7 DAYS OFF)(Q (EVERY) DAY X21, 7DAYS OFF)
     Route: 048
     Dates: start: 20181128

REACTIONS (2)
  - Vomiting [Unknown]
  - Nausea [Unknown]
